FAERS Safety Report 8951115 (Version 2)
Quarter: 2013Q1

REPORT INFORMATION
  Report Type: Spontaneous
  Country: US (occurrence: None)
  Receive Date: 20121105
  Receipt Date: 20121119
  Transmission Date: 20140127
  Serious: Yes (Other)
  Sender: FDA-Public Use
  Company Number: 2012033664

PATIENT
  Sex: Female
  Weight: 83.92 kg

DRUGS (20)
  1. PRIVIGEN (IMMUNE GLOBULIN INTRAVENOUS (HUMAN) 10% LIQUID) [Suspect]
     Indication: HYPOGAMMAGLOBULINAEMIA
     Dosage: 25 G 1X/2 WEEKS, ??-SEP-2012; BEGIN INFUSION AT 0.5 ML/MIN X30 MIN THEN, INCREASE TO 2.5 ML/MIN
     Dates: start: 201209
  2. ACETAMINOPHEN (PARACETAMOL) [Concomitant]
  3. DIPHENHYDRAMINE [Concomitant]
  4. HEPARIN [Concomitant]
  5. LIDOCAINE [Concomitant]
  6. SODIUM CHLORIDE [Concomitant]
  7. EPI-PEN (EPINEPHRINE HYDROCHLORIDE) [Concomitant]
  8. METFORMIN [Concomitant]
  9. PRAVASTATIN [Concomitant]
  10. PROAIR (SALBUTAMOL SULFATE) [Concomitant]
  11. KLONOPIN (CLONAZEPAM) [Concomitant]
  12. ZOLOFT (SERTRALINE) [Concomitant]
  13. FLEXERIL (CYCLOBENZAPRINE HYDROCHLORIDE) [Concomitant]
  14. GEODON (ZIPRASIDONE HYDROCHLORIDE) [Concomitant]
  15. IMODIUM (LOPERAMIDE HYDROCHLORIDE) [Concomitant]
  16. SINGULAIR [Concomitant]
  17. LITHIUM [Concomitant]
  18. ADVAIR (SERETIDE) [Concomitant]
  19. RHINOCORT (BUDESONIDE) [Concomitant]
  20. PREMARIN (ESTROGENS CONJUGATED) [Concomitant]

REACTIONS (1)
  - Urinary tract infection [None]
